FAERS Safety Report 6943011-4 (Version None)
Quarter: 2010Q3

REPORT INFORMATION
  Report Type: 
  Country: None (occurrence: None)
  Receive Date: 20100826
  Receipt Date: 20100817
  Transmission Date: 20110219
  Serious: Yes (Other)
  Sender: FDA-Public Use
  Company Number: US-MERCK-1003USA03097

PATIENT
  Age: 76 Year
  Sex: Female
  Weight: 84 kg

DRUGS (6)
  1. FOSAMAX [Suspect]
     Indication: OSTEOPOROSIS
     Route: 048
     Dates: start: 20061110, end: 20100101
  2. LIPITOR [Concomitant]
     Indication: HYPERCHOLESTEROLAEMIA
     Route: 048
     Dates: start: 20061101
  3. NEXIUM [Concomitant]
     Indication: GASTROOESOPHAGEAL REFLUX DISEASE
     Route: 048
     Dates: start: 20080401, end: 20100305
  4. PREMARIN [Concomitant]
     Route: 065
     Dates: start: 20071101
  5. LEVOXYL [Concomitant]
     Indication: HYPOTHYROIDISM
     Route: 048
     Dates: start: 20061101
  6. AMLODIPINE [Concomitant]
     Indication: HYPERTENSION
     Route: 048
     Dates: start: 20090401

REACTIONS (14)
  - BONE PAIN [None]
  - CATARACT [None]
  - EYE PAIN [None]
  - EYE PRURITUS [None]
  - FAECES DISCOLOURED [None]
  - GASTRITIS [None]
  - HAEMATOCHEZIA [None]
  - LIP SWELLING [None]
  - MYALGIA [None]
  - OEDEMA PERIPHERAL [None]
  - PAIN [None]
  - PRURITUS GENERALISED [None]
  - RECTAL HAEMORRHAGE [None]
  - SWELLING FACE [None]
